APPROVED DRUG PRODUCT: RAMIPRIL
Active Ingredient: RAMIPRIL
Strength: 10MG
Dosage Form/Route: CAPSULE;ORAL
Application: A202392 | Product #004
Applicant: ACCORD HEALTHCARE INC
Approved: Apr 15, 2014 | RLD: No | RS: No | Type: DISCN